FAERS Safety Report 9461737 (Version 2)
Quarter: 2014Q2

REPORT INFORMATION
  Report Type: Report from Study
  Country: JP (occurrence: JP)
  Receive Date: 20130816
  Receipt Date: 20140625
  Transmission Date: 20141212
  Serious: Yes (Hospitalization, Other)
  Sender: FDA-Public Use
  Company Number: JP-ASTELLAS-2013JP008527

PATIENT
  Age: 56 Year
  Sex: Male

DRUGS (6)
  1. MIRABEGRON [Suspect]
     Indication: HYPERTONIC BLADDER
     Route: 048
     Dates: start: 20130108, end: 20130413
  2. VESICARE [Suspect]
     Indication: HYPERTONIC BLADDER
     Route: 048
     Dates: start: 20120418, end: 20130413
  3. SPIROPENT [Concomitant]
     Indication: ENURESIS
     Route: 048
     Dates: start: 20120418
  4. TOFRANIL [Concomitant]
     Indication: ENURESIS
     Route: 048
  5. AMOBAN [Concomitant]
     Indication: INSOMNIA
     Route: 048
  6. EURODIN                            /00425901/ [Concomitant]
     Indication: INSOMNIA
     Route: 048

REACTIONS (2)
  - Cerebral infarction [Recovered/Resolved with Sequelae]
  - Nausea [Recovered/Resolved]
